FAERS Safety Report 9073755 (Version 1)
Quarter: 2013Q1

REPORT INFORMATION
  Report Type: Report from Study
  Country: US (occurrence: US)
  Receive Date: 20130129
  Receipt Date: 20130129
  Transmission Date: 20140127
  Serious: No
  Sender: FDA-Public Use
  Company Number: US-ABBOTT-12P-163-0921517-00

PATIENT
  Age: 59 None
  Sex: Female

DRUGS (2)
  1. HUMIRA 40 MG/0.8 ML PEN [Suspect]
     Indication: PSORIASIS
     Dosage: (80 MG, LOADING DOSE)
     Dates: start: 20120403
  2. METFORMIN [Concomitant]
     Indication: DIABETES MELLITUS

REACTIONS (3)
  - Injury associated with device [Recovered/Resolved]
  - Haemorrhage [Recovered/Resolved]
  - Wrong technique in drug usage process [Unknown]
